FAERS Safety Report 16121343 (Version 1)
Quarter: 2019Q1

REPORT INFORMATION
  Report Type: Spontaneous
  Country: US (occurrence: US)
  Receive Date: 20190327
  Receipt Date: 20190327
  Transmission Date: 20190418
  Serious: Yes (Other)
  Sender: FDA-Public Use
  Company Number: US-ROCHE-2285625

PATIENT
  Sex: Female
  Weight: 102.6 kg

DRUGS (1)
  1. OCREVUS [Suspect]
     Active Substance: OCRELIZUMAB
     Indication: RELAPSING MULTIPLE SCLEROSIS
     Route: 042
     Dates: start: 2017

REACTIONS (3)
  - Insomnia [Not Recovered/Not Resolved]
  - Progressive multiple sclerosis [Unknown]
  - Fatigue [Unknown]
